FAERS Safety Report 26206783 (Version 1)
Quarter: 2025Q4

REPORT INFORMATION
  Report Type: Spontaneous
  Country: CN (occurrence: CN)
  Receive Date: 20251229
  Receipt Date: 20251229
  Transmission Date: 20260118
  Serious: Yes (Other)
  Sender: RANBAXY
  Company Number: CN-SUN PHARMACEUTICAL INDUSTRIES LTD-2025R1-543608

PATIENT
  Age: 26 Year
  Sex: Male

DRUGS (6)
  1. METHYLCOBALAMIN [Suspect]
     Active Substance: METHYLCOBALAMIN
     Indication: Perineal pain
     Dosage: 500 MICROGRAM, TID
     Route: 065
  2. METHYLCOBALAMIN [Suspect]
     Active Substance: METHYLCOBALAMIN
     Indication: Nervous system disorder prophylaxis
  3. EBASTINE [Suspect]
     Active Substance: EBASTINE
     Indication: Perineal pain
     Dosage: 50 MILLIGRAM, TID
     Route: 065
  4. GABAPENTIN [Suspect]
     Active Substance: GABAPENTIN
     Indication: Perineal pain
     Dosage: 300 MILLIGRAM, TID
     Route: 065
  5. THIOCTIC ACID [Suspect]
     Active Substance: THIOCTIC ACID
     Indication: Perineal pain
     Dosage: 450 MILLIGRAM, DAILY
     Route: 065
  6. BUPRENORPHINE [Suspect]
     Active Substance: BUPRENORPHINE
     Indication: Perineal pain
     Dosage: UNK
     Route: 030

REACTIONS (2)
  - Drug ineffective [Unknown]
  - Muscular weakness [Unknown]
